FAERS Safety Report 22757215 (Version 3)
Quarter: 2024Q2

REPORT INFORMATION
  Report Type: Report from Study
  Country: CA (occurrence: CA)
  Receive Date: 20230727
  Receipt Date: 20240627
  Transmission Date: 20240716
  Serious: Yes (Death, Other)
  Sender: FDA-Public Use
  Company Number: CA-SUN PHARMACEUTICAL INDUSTRIES LTD-2022R1-329776

PATIENT
  Age: 68 Year
  Sex: Male

DRUGS (3)
  1. TILDRAKIZUMAB [Suspect]
     Active Substance: TILDRAKIZUMAB
     Indication: Psoriasis
     Dosage: 100 MILLIGRAM; Q12 WEEK
     Route: 058
     Dates: start: 20211117
  2. TILDRAKIZUMAB [Suspect]
     Active Substance: TILDRAKIZUMAB
     Dosage: 100 MILLIGRAM; WK 0,4,12
     Route: 058
     Dates: start: 20211117
  3. TILDRAKIZUMAB [Suspect]
     Active Substance: TILDRAKIZUMAB
     Dosage: 100 MILLIGRAM; WK 0,4,12
     Route: 058
     Dates: start: 20211117

REACTIONS (8)
  - Death [Fatal]
  - Psoriasis [Unknown]
  - Wound secretion [Unknown]
  - Lung cancer metastatic [Unknown]
  - Pneumonia [Unknown]
  - Insomnia [Unknown]
  - Rash [Unknown]
  - Inappropriate schedule of product administration [Unknown]

NARRATIVE: CASE EVENT DATE: 20230717
